FAERS Safety Report 11968353 (Version 2)
Quarter: 2016Q1

REPORT INFORMATION
  Report Type: Spontaneous
  Country: JP (occurrence: JP)
  Receive Date: 20160128
  Receipt Date: 20160203
  Transmission Date: 20160526
  Serious: Yes (Death, Hospitalization, Other)
  Sender: FDA-Public Use
  Company Number: JP-ROCHE-1701232

PATIENT
  Age: 74 Year
  Sex: Female

DRUGS (13)
  1. LUNESTA [Concomitant]
     Active Substance: ESZOPICLONE
     Route: 065
     Dates: start: 20151215, end: 20151224
  2. LIMAPROST ALFADEX [Concomitant]
     Active Substance: LIMAPROST
     Dosage: FRACTIONATION DOSE UNCERTAIN FREQUENCY AND DOSE INTERVAL UNCERTAINTY
     Route: 048
     Dates: start: 20151215, end: 20151215
  3. LECICARBON [Concomitant]
     Active Substance: SODIUM BICARBONATE\SODIUM PHOSPHATE, MONOBASIC
     Route: 054
     Dates: start: 20151217, end: 20151217
  4. COPEGUS [Suspect]
     Active Substance: RIBAVIRIN
     Dosage: 200MG AND FOUR TIME A WEEK THREE TIME A WEEK 400MG, DOSE REDUCED TO 1 TABLET, 3 DAYS IN A WEEK AND 2
     Route: 048
     Dates: start: 20151210, end: 20160106
  5. MEMARY [Concomitant]
     Active Substance: MEMANTINE HYDROCHLORIDE
     Dosage: FRACTIONATION DOSE UNCERTAIN FREQUENCY AND DOSE INTERVAL UNCERTAINTY
     Route: 048
     Dates: start: 20151218, end: 20151224
  6. TRAMAL [Concomitant]
     Active Substance: TRAMADOL
     Dosage: 4 TABLETS IN 4 DIVIDED DOSES
     Route: 065
  7. COPEGUS [Suspect]
     Active Substance: RIBAVIRIN
     Indication: HEPATITIS
     Dosage: DOSAGE IS UNCERTAIN., 2 TABLETS DAILY
     Route: 048
     Dates: start: 20151015, end: 20151209
  8. MYONAL (JAPAN) [Concomitant]
     Active Substance: EPERISONE HYDROCHLORIDE
     Route: 048
  9. EDIROL [Concomitant]
     Active Substance: ELDECALCITOL
     Route: 048
  10. REFLEX [Concomitant]
     Active Substance: MIRTAZAPINE
     Dosage: FRACTIONATION DOSE UNCERTAIN FREQUENCY AND DOSE INTERVAL UNCERTAINTY
     Route: 065
     Dates: start: 20151215, end: 20151224
  11. SOVALDI [Suspect]
     Active Substance: SOFOSBUVIR
     Indication: HEPATITIS
     Route: 065
     Dates: start: 20151015
  12. PRORENAL (JAPAN) [Concomitant]
     Active Substance: LIMAPROST
     Dosage: FRACTIONATION DOSE UNCERTAIN FREQUENCY AND DOSE INTERVAL UNCERTAINTY
     Route: 048
     Dates: start: 20151218
  13. MEMARY [Concomitant]
     Active Substance: MEMANTINE HYDROCHLORIDE
     Dosage: FRACTIONATION DOSE UNCERTAIN FREQUENCY AND DOSE INTERVAL UNCERTAINTY
     Route: 048
     Dates: start: 20151215

REACTIONS (6)
  - White blood cell count decreased [Unknown]
  - Haemoglobin decreased [Unknown]
  - Drowning [Fatal]
  - Neuralgia [Recovering/Resolving]
  - Herpes zoster [Recovering/Resolving]
  - Loss of consciousness [Unknown]

NARRATIVE: CASE EVENT DATE: 20151214
